FAERS Safety Report 16981632 (Version 3)
Quarter: 2019Q4

REPORT INFORMATION
  Report Type: Spontaneous
  Country: US (occurrence: US)
  Receive Date: 20191101
  Receipt Date: 20191201
  Transmission Date: 20200122
  Serious: No
  Sender: FDA-Public Use
  Company Number: US-UNITED THERAPEUTICS-UNT-2019-015187

PATIENT
  Age: 53 Year
  Sex: Female
  Weight: 76.64 kg

DRUGS (5)
  1. REMODULIN [Suspect]
     Active Substance: TREPROSTINIL
     Indication: PULMONARY ARTERIAL HYPERTENSION
     Dosage: 0.018 ?G/KG, CONTINUING
     Route: 058
     Dates: start: 20190912
  2. REMODULIN [Suspect]
     Active Substance: TREPROSTINIL
     Dosage: 0.0285 ?G/KG, CONTINUING
     Route: 058
     Dates: start: 2019
  3. SILDENAFIL CITRATE. [Concomitant]
     Active Substance: SILDENAFIL CITRATE
     Indication: PRODUCT USED FOR UNKNOWN INDICATION
     Dosage: UNK
     Route: 065
  4. REMODULIN [Suspect]
     Active Substance: TREPROSTINIL
     Dosage: 0.0305 ?G/KG, CONTINUING
     Route: 058
     Dates: start: 2019
  5. REMODULIN [Suspect]
     Active Substance: TREPROSTINIL
     Dosage: UNK, CONTINUING
     Route: 058
     Dates: start: 2019

REACTIONS (15)
  - Back pain [Unknown]
  - Nausea [Unknown]
  - Arthralgia [Unknown]
  - Infusion site pain [Unknown]
  - Pain in extremity [Unknown]
  - Pain [Unknown]
  - Drug titration error [Unknown]
  - Product communication issue [Unknown]
  - Fatigue [Unknown]
  - Eye infection [Unknown]
  - Headache [Unknown]
  - Pain in jaw [Unknown]
  - Infusion site pruritus [Unknown]
  - Musculoskeletal pain [Unknown]
  - Vomiting [Unknown]

NARRATIVE: CASE EVENT DATE: 2019
